FAERS Safety Report 12287387 (Version 3)
Quarter: 2016Q3

REPORT INFORMATION
  Report Type: Spontaneous
  Country: US (occurrence: US)
  Receive Date: 20160420
  Receipt Date: 20160916
  Transmission Date: 20161109
  Serious: No
  Sender: FDA-Public Use
  Company Number: US-ALKERMES INC.-ALK-2016-000312

PATIENT
  Sex: Female
  Weight: 97.52 kg

DRUGS (1)
  1. ARISTADA [Suspect]
     Active Substance: ARIPIPRAZOLE LAUROXIL
     Indication: SCHIZOAFFECTIVE DISORDER
     Dosage: 662 MG, UNK
     Route: 030
     Dates: start: 20160208

REACTIONS (4)
  - Musculoskeletal discomfort [Unknown]
  - Drug dose omission [Recovered/Resolved]
  - Needle issue [Recovered/Resolved]
  - Product quality issue [Recovered/Resolved]

NARRATIVE: CASE EVENT DATE: 20160208
